FAERS Safety Report 9772169 (Version 1)
Quarter: 2013Q4

REPORT INFORMATION
  Report Type: Spontaneous
  Country: US (occurrence: None)
  Receive Date: 20131218
  Receipt Date: 20131218
  Transmission Date: 20140711
  Serious: Yes (Life-Threatening, Other)
  Sender: FDA-Public Use
  Company Number: None

PATIENT
  Sex: 0
  Weight: 57.61 kg

DRUGS (1)
  1. CHLORHEXIDINE GLUCONATE [Suspect]
     Indication: PREOPERATIVE CARE
     Dates: start: 20131216, end: 20131216

REACTIONS (10)
  - Dyspnoea [None]
  - Throat irritation [None]
  - Nasal discomfort [None]
  - Pharyngeal oedema [None]
  - Chills [None]
  - Tremor [None]
  - Palpitations [None]
  - Erythema [None]
  - Urticaria [None]
  - Dizziness [None]
